FAERS Safety Report 10044918 (Version 3)
Quarter: 2014Q2

REPORT INFORMATION
  Report Type: Spontaneous
  Country: US (occurrence: US)
  Receive Date: 20140328
  Receipt Date: 20140411
  Transmission Date: 20141212
  Serious: Yes (Other)
  Sender: FDA-Public Use
  Company Number: US-UCBSA-104612

PATIENT
  Age: 52 Year
  Sex: Female
  Weight: 91.6 kg

DRUGS (12)
  1. MORPHINE [Suspect]
  2. GABAPENTIN [Suspect]
  3. METFORMIN [Concomitant]
     Dates: start: 201401
  4. LEVOTHYROXINE [Concomitant]
     Dates: start: 201401
  5. PRAVASTATIN [Concomitant]
     Indication: BLOOD CHOLESTEROL INCREASED
  6. LISINOPRIL [Concomitant]
     Indication: HYPERTENSION
     Dosage: 20 MG ONCE
  7. MS TIME RELEASE [Concomitant]
     Indication: PAIN
  8. NORCO [Concomitant]
     Dosage: 10MG/500MG
  9. LORTAB [Suspect]
     Indication: SPINAL CORD DISORDER
     Dosage: DOSAGE STRENGTH:10/500 MG; STARTED 3 TO 4 YEARS AGO
  10. EFFEXOR [Suspect]
  11. FLEXERIL [Suspect]
  12. ULTRAM [Suspect]

REACTIONS (6)
  - Diabetes mellitus [Not Recovered/Not Resolved]
  - Hyperthyroidism [Not Recovered/Not Resolved]
  - Arthritis [Not Recovered/Not Resolved]
  - Cough [Not Recovered/Not Resolved]
  - Constipation [Unknown]
  - Faecaloma [Unknown]
